FAERS Safety Report 23298363 (Version 1)
Quarter: 2023Q4

REPORT INFORMATION
  Report Type: Spontaneous
  Country: US (occurrence: US)
  Receive Date: 20231214
  Receipt Date: 20231214
  Transmission Date: 20240109
  Serious: No
  Sender: FDA-Public Use
  Company Number: US-PERRIGO-23US000029

PATIENT
  Age: 62 Year
  Sex: Female
  Weight: 49.887 kg

DRUGS (1)
  1. MIGRAINE FORMULA [Suspect]
     Active Substance: ACETAMINOPHEN\ASPIRIN\CAFFEINE
     Indication: Migraine
     Dosage: 2 CAPLETS, QD, PRN
     Route: 048
     Dates: start: 2021, end: 20230102

REACTIONS (6)
  - Abdominal pain [Recovered/Resolved]
  - Chills [Recovered/Resolved]
  - Blood urine present [Recovered/Resolved]
  - Urinary sediment [Recovered/Resolved]
  - Incorrect dose administered [Unknown]
  - Expired product administered [Unknown]

NARRATIVE: CASE EVENT DATE: 20221101
